FAERS Safety Report 10184105 (Version 1)
Quarter: 2014Q2

REPORT INFORMATION
  Report Type: Spontaneous
  Country: US (occurrence: US)
  Receive Date: 20140520
  Receipt Date: 20140520
  Transmission Date: 20141212
  Serious: No
  Sender: FDA-Public Use
  Company Number: US-ASTRAZENECA-2013SE73369

PATIENT
  Age: 34 Year
  Sex: Female

DRUGS (4)
  1. ENTOCORT [Suspect]
     Route: 048
  2. ENTOCORT [Suspect]
     Route: 048
  3. CIMZIA [Suspect]
     Route: 065
  4. FLORASTOR [Concomitant]

REACTIONS (2)
  - Infection susceptibility increased [Unknown]
  - Drug effect incomplete [Unknown]
